FAERS Safety Report 24104012 (Version 1)
Quarter: 2024Q3

REPORT INFORMATION
  Report Type: Spontaneous
  Country: PT (occurrence: PT)
  Receive Date: 20240717
  Receipt Date: 20240717
  Transmission Date: 20241017
  Serious: Yes (Other)
  Sender: BAXTER
  Company Number: None

PATIENT
  Age: 42 Year
  Sex: Female
  Weight: 70 kg

DRUGS (9)
  1. KETOROLAC [Interacting]
     Active Substance: KETOROLAC TROMETHAMINE
     Dosage: DOSAGE TEXT : 30 MG WITHOUT MORE DETAILED INFORMATION
     Route: 042
     Dates: start: 20240530
  2. ENOXAPARIN SODIUM [Interacting]
     Active Substance: ENOXAPARIN SODIUM
     Dosage: DOSAGE TEXT : 40 MG INTRAVENOUS WITHOUT MORE DETAILED INFORMATION
     Route: 058
     Dates: start: 20240530
  3. HEME [Suspect]
     Active Substance: HEME
     Indication: Porphyria acute
     Dosage: 240 MILLIGRAMS, ONCE A DAY, DOSAGE TEXT : 4MG/KG/DAY 4 DAYS, STRENGTH NAME: 250 MG/10 ML
     Route: 042
     Dates: start: 20240527, end: 20240530
  4. MORPHINE [Concomitant]
     Active Substance: MORPHINE
     Dosage: UNK
     Route: 065
  5. ACETAMINOPHEN [Concomitant]
     Active Substance: ACETAMINOPHEN
     Dosage: UNK
     Route: 065
  6. ESCITALOPRAM [Concomitant]
     Active Substance: ESCITALOPRAM OXALATE
     Dosage: UNK
     Route: 065
  7. CIPROFLOXACIN [Concomitant]
     Active Substance: CIPROFLOXACIN
     Dosage: UNK
     Route: 065
  8. BUTYLSCOPOLAMINE [Concomitant]
     Active Substance: BUTYLSCOPOLAMINE
     Dosage: UNK
     Route: 065
  9. METOCLOPRAMIDE [Concomitant]
     Active Substance: METOCLOPRAMIDE
     Dosage: UNK
     Route: 065

REACTIONS (3)
  - Cyanosis [Recovered/Resolved]
  - Periorbital oedema [Recovered/Resolved]
  - Pruritus [Recovered/Resolved]

NARRATIVE: CASE EVENT DATE: 20240530
